FAERS Safety Report 10533222 (Version 1)
Quarter: 2014Q4

REPORT INFORMATION
  Report Type: Spontaneous
  Country: US (occurrence: None)
  Receive Date: 20141021
  Receipt Date: 20141021
  Transmission Date: 20150529
  Serious: Yes (Death)
  Sender: FDA-Public Use
  Company Number: None

PATIENT
  Sex: Male

DRUGS (4)
  1. ATIVAN [Concomitant]
     Active Substance: LORAZEPAM
  2. CAPECITABINE. [Concomitant]
     Active Substance: CAPECITABINE
  3. PULMOZYME [Suspect]
     Active Substance: DORNASE ALFA
     Indication: OESOPHAGEAL CARCINOMA
     Route: 055
     Dates: start: 20140718
  4. LEXAPRO [Concomitant]
     Active Substance: ESCITALOPRAM OXALATE

REACTIONS (1)
  - Death [None]
